FAERS Safety Report 12854377 (Version 1)
Quarter: 2016Q4

REPORT INFORMATION
  Report Type: Spontaneous
  Country: US (occurrence: US)
  Receive Date: 20161017
  Receipt Date: 20161017
  Transmission Date: 20170207
  Serious: No
  Sender: FDA-Public Use
  Company Number: US-GALDERMA-US16004645

PATIENT
  Age: 78 Year
  Sex: Female

DRUGS (12)
  1. SOOLANTRA [Suspect]
     Active Substance: IVERMECTIN
     Indication: DERMATITIS
     Dosage: 1%
     Route: 061
     Dates: start: 20160624, end: 20160706
  2. WARFARIN [Concomitant]
     Active Substance: WARFARIN
     Indication: ATRIAL FIBRILLATION
     Route: 048
  3. TEMAZEPAM. [Concomitant]
     Active Substance: TEMAZEPAM
  4. GLUCOSAMINE [Concomitant]
     Active Substance: GLUCOSAMINE
  5. MULTI VITAMIN [Concomitant]
     Active Substance: VITAMINS
  6. AQUAPHOR MEDICATED LUBRICANT [Concomitant]
     Indication: RASH
     Route: 061
  7. DIFLUCAN [Concomitant]
     Active Substance: FLUCONAZOLE
     Dosage: #2 QWEEK
     Dates: start: 20160627, end: 20160704
  8. ATIVAN [Concomitant]
     Active Substance: LORAZEPAM
  9. METOPROLOL. [Concomitant]
     Active Substance: METOPROLOL
  10. FLOVENT [Concomitant]
     Active Substance: FLUTICASONE PROPIONATE
  11. PRAVASTATIN. [Concomitant]
     Active Substance: PRAVASTATIN
  12. CETAPHIL [Concomitant]
     Active Substance: AVOBENZONE\OCTOCRYLENE\TRICLOSAN
     Indication: THERAPEUTIC SKIN CARE TOPICAL
     Route: 061

REACTIONS (3)
  - Skin burning sensation [Recovered/Resolved]
  - Intentional product use issue [Recovered/Resolved]
  - Skin irritation [Recovered/Resolved]

NARRATIVE: CASE EVENT DATE: 201606
